FAERS Safety Report 22102073 (Version 1)
Quarter: 2023Q1

REPORT INFORMATION
  Report Type: Report from Study
  Country: US (occurrence: US)
  Receive Date: 20230316
  Receipt Date: 20230316
  Transmission Date: 20230418
  Serious: Yes (Other)
  Sender: FDA-Public Use
  Company Number: US-TAKEDA-2023TUS025779

PATIENT
  Sex: Male

DRUGS (2)
  1. MARIBAVIR [Suspect]
     Active Substance: MARIBAVIR
     Indication: Cytomegalovirus infection
     Dosage: 400 MILLIGRAM, BID
     Route: 048
     Dates: start: 20230223
  2. MARIBAVIR [Suspect]
     Active Substance: MARIBAVIR
     Indication: Non-Hodgkin^s lymphoma

REACTIONS (2)
  - Hepatitis [Unknown]
  - Dysgeusia [Unknown]
